FAERS Safety Report 9722450 (Version 1)
Quarter: 2013Q4

REPORT INFORMATION
  Report Type: Spontaneous
  Country: DE (occurrence: DE)
  Receive Date: 20131202
  Receipt Date: 20131202
  Transmission Date: 20140711
  Serious: Yes (Other)
  Sender: FDA-Public Use
  Company Number: PHHY2013DE138681

PATIENT
  Sex: Male

DRUGS (1)
  1. GLIVEC [Suspect]
     Dosage: 400 MG, DAILY
     Dates: start: 201109

REACTIONS (4)
  - Osteonecrosis of jaw [Unknown]
  - Tooth loss [Unknown]
  - Fatigue [Unknown]
  - Myalgia [Unknown]
